FAERS Safety Report 6135037-8 (Version None)
Quarter: 2009Q1

REPORT INFORMATION
  Report Type: 
  Country: None (occurrence: None)
  Receive Date: 20090327
  Receipt Date: 20090317
  Transmission Date: 20090719
  Serious: Yes (Death)
  Sender: FDA-Public Use
  Company Number: KR-PFIZER INC-2007103871

PATIENT

DRUGS (1)
  1. MISOPROSTOL [Suspect]
     Route: 048
     Dates: start: 20050726

REACTIONS (1)
  - HAEMORRHAGE [None]
